FAERS Safety Report 7076439-5 (Version None)
Quarter: 2010Q4

REPORT INFORMATION
  Report Type: 
  Country: None (occurrence: None)
  Receive Date: 20101101
  Receipt Date: 20100412
  Transmission Date: 20110411
  Serious: Yes (Other)
  Sender: FDA-Public Use
  Company Number: US-ASTRAZENECA-2009UW17783

PATIENT
  Age: 9133 Day
  Sex: Male

DRUGS (8)
  1. SEROQUEL [Suspect]
     Dosage: 25 TO 50 MG
     Route: 048
     Dates: start: 20070227
  2. PROMETHAZINE [Concomitant]
     Dates: start: 20070101
  3. HYDROCODONE [Concomitant]
     Dosage: 7.5/ 50
     Dates: start: 20070101
  4. PAXIL CR [Concomitant]
     Dates: start: 20070101
  5. FLEXERIL [Concomitant]
     Route: 048
     Dates: start: 20070606
  6. LORTAB [Concomitant]
     Route: 048
     Dates: start: 20070606
  7. LYRICA [Concomitant]
     Route: 048
     Dates: start: 20070606
  8. ROBAXIN [Concomitant]
     Dates: start: 20070606

REACTIONS (2)
  - DIABETES MELLITUS [None]
  - DIABETIC NEUROPATHY [None]
